FAERS Safety Report 10217573 (Version 1)
Quarter: 2014Q2

REPORT INFORMATION
  Report Type: Spontaneous
  Country: US (occurrence: US)
  Receive Date: 20140604
  Receipt Date: 20140604
  Transmission Date: 20141212
  Serious: Yes (Other)
  Sender: FDA-Public Use
  Company Number: US-ABBVIE-14P-163-1242519-00

PATIENT
  Sex: Male

DRUGS (1)
  1. ANDROGEL [Suspect]
     Indication: BLOOD TESTOSTERONE DECREASED
     Dates: start: 200808

REACTIONS (8)
  - Acute myocardial infarction [Unknown]
  - Injury [Unknown]
  - Economic problem [Unknown]
  - Anhedonia [Unknown]
  - Anhedonia [Unknown]
  - Loss of employment [Unknown]
  - Loss of employment [Unknown]
  - Emotional distress [Unknown]
